FAERS Safety Report 14898137 (Version 2)
Quarter: 2018Q2

REPORT INFORMATION
  Report Type: Spontaneous
  Country: US (occurrence: US)
  Receive Date: 20180515
  Receipt Date: 20180517
  Transmission Date: 20180711
  Serious: No
  Sender: FDA-Public Use
  Company Number: US-SA-2018SA041855

PATIENT

DRUGS (6)
  1. HUMALOG [Concomitant]
     Active Substance: INSULIN LISPRO
     Route: 065
  2. TOUJEO [Suspect]
     Active Substance: INSULIN GLARGINE
     Route: 051
  3. GALVUS [Concomitant]
     Active Substance: VILDAGLIPTIN
     Route: 065
  4. SOLOSTAR [Suspect]
     Active Substance: DEVICE
     Route: 051
  5. BYETTA [Concomitant]
     Active Substance: EXENATIDE
     Route: 065
  6. NOVOLOG [Concomitant]
     Active Substance: INSULIN ASPART
     Dosage: 70/30
     Route: 065

REACTIONS (1)
  - Glycosylated haemoglobin increased [Unknown]
